FAERS Safety Report 7071328-4 (Version None)
Quarter: 2010Q4

REPORT INFORMATION
  Report Type: 
  Country: None (occurrence: None)
  Receive Date: 20101028
  Receipt Date: 20101028
  Transmission Date: 20110411
  Serious: Yes (Disabling)
  Sender: FDA-Public Use
  Company Number: None

PATIENT
  Sex: Female
  Weight: 54.4316 kg

DRUGS (1)
  1. RECLAST [Suspect]
     Indication: OSTEOPOROSIS
     Dosage: 1 TIME IV ONCE
     Route: 042
     Dates: start: 20100801

REACTIONS (3)
  - PAIN IN JAW [None]
  - TOOTH LOSS [None]
  - TOOTHACHE [None]
